FAERS Safety Report 8189173-5 (Version None)
Quarter: 2012Q1

REPORT INFORMATION
  Report Type: 
  Country: None (occurrence: None)
  Receive Date: 20120306
  Receipt Date: 20120306
  Transmission Date: 20120608
  Serious: Yes (Other)
  Sender: FDA-Public Use
  Company Number: None

PATIENT
  Sex: Male
  Weight: 86.637 kg

DRUGS (6)
  1. CARVEDILOL [Suspect]
     Indication: CORONARY ARTERY DISEASE
     Dosage: 25 MG BID MOUTH
     Route: 048
     Dates: start: 20120120, end: 20120210
  2. CARVEDILOL [Suspect]
     Indication: MYOCARDIAL INFARCTION
     Dosage: 25 MG BID MOUTH
     Route: 048
     Dates: start: 20120120, end: 20120210
  3. CARVEDILOL [Suspect]
     Indication: HYPERTENSION
     Dosage: 25 MG BID MOUTH
     Route: 048
     Dates: start: 20120120, end: 20120210
  4. ATORVASTATIN [Suspect]
     Indication: MYOCARDIAL INFARCTION
     Dosage: 80MG DAILY MOUTH
     Route: 048
     Dates: start: 20120120, end: 20120210
  5. ATORVASTATIN [Suspect]
     Indication: HYPERLIPIDAEMIA
     Dosage: 80MG DAILY MOUTH
     Route: 048
     Dates: start: 20120120, end: 20120210
  6. ATORVASTATIN [Suspect]
     Indication: CORONARY ARTERY DISEASE
     Dosage: 80MG DAILY MOUTH
     Route: 048
     Dates: start: 20120120, end: 20120210

REACTIONS (9)
  - DECREASED APPETITE [None]
  - VOMITING [None]
  - HEPATIC PAIN [None]
  - NAUSEA [None]
  - DRY MOUTH [None]
  - HEADACHE [None]
  - TONGUE DISCOLOURATION [None]
  - DIZZINESS [None]
  - DRUG INEFFECTIVE [None]
